FAERS Safety Report 5835360-8 (Version None)
Quarter: 2008Q3

REPORT INFORMATION
  Report Type: 
  Country: None (occurrence: None)
  Receive Date: 20080806
  Receipt Date: 20080801
  Transmission Date: 20090109
  Serious: Yes (Hospitalization)
  Sender: FDA-Public Use
  Company Number: US-BRISTOL-MYERS SQUIBB COMPANY-14286892

PATIENT
  Age: 67 Year
  Sex: Male
  Weight: 88 kg

DRUGS (17)
  1. CISPLATIN [Suspect]
     Indication: HEAD AND NECK CANCER
     Dosage: INITIAL DOSE TAKEN ON 23AJUN08
     Dates: start: 20080714, end: 20080714
  2. RADIATION THERAPY [Suspect]
     Indication: HEAD AND NECK CANCER
     Dosage: 1 DOSAGE FORM = 1 FRACTION TOTAL DOSE = 5000 CGY
     Dates: end: 20080722
  3. ALPRAZOLAM [Concomitant]
  4. ASPIRIN [Concomitant]
  5. ATIVAN [Concomitant]
  6. COMPAZINE [Concomitant]
  7. FLOMAX [Concomitant]
  8. FLUCONAZOLE [Concomitant]
  9. LASIX [Concomitant]
  10. LISINOPRIL [Concomitant]
  11. NASONEX [Concomitant]
  12. NORVASC [Concomitant]
  13. PREVACID [Concomitant]
  14. REGLAN [Concomitant]
  15. RISTORIL [Concomitant]
  16. VYTORIN [Concomitant]
  17. ZOFRAN [Concomitant]

REACTIONS (3)
  - NAUSEA [None]
  - STOMATITIS [None]
  - VOMITING [None]
